FAERS Safety Report 4399953-X (Version None)
Quarter: 2004Q3

REPORT INFORMATION
  Report Type: 
  Country: None (occurrence: None)
  Receive Date: 20040714
  Receipt Date: 20040630
  Transmission Date: 20050211
  Serious: Yes (Other)
  Sender: FDA-Public Use
  Company Number: 2004-06-0264

PATIENT
  Age: 47 Year
  Sex: Female

DRUGS (4)
  1. CLARITIN [Suspect]
     Indication: VENOMOUS STING
     Dosage: 10 MG QD ORAL
     Route: 048
     Dates: start: 20040601, end: 20040603
  2. PREDONINE [Concomitant]
  3. BLOPRESS (CANDESARTAN CILEXETIL) [Concomitant]
  4. TROXIPIDE [Concomitant]

REACTIONS (2)
  - DRUG ERUPTION [None]
  - FLUSHING [None]
